FAERS Safety Report 6595669-X (Version None)
Quarter: 2010Q1

REPORT INFORMATION
  Report Type: 
  Country: None (occurrence: None)
  Receive Date: 20100223
  Receipt Date: 20100105
  Transmission Date: 20100710
  Serious: Yes (Death)
  Sender: FDA-Public Use
  Company Number: US-TYCO HEALTHCARE/MALLINCKRODT-T201000397

PATIENT
  Age: 55 Year
  Sex: Female

DRUGS (9)
  1. ACETAMINOPHEN AND CODEINE PHOSPHATE [Suspect]
     Dosage: UNK
     Route: 048
  2. MARIJUANA [Suspect]
     Dosage: UNK
     Route: 048
  3. CITALOPRAM HYDROBROMIDE [Suspect]
     Dosage: UNK
     Route: 048
  4. TOPIRAMATE [Suspect]
     Dosage: UNK
     Route: 048
  5. PREGABALIN [Suspect]
     Dosage: UNK
     Route: 048
  6. NAPROXEN [Suspect]
     Dosage: UNK
     Route: 048
  7. OPIOIDS [Suspect]
     Dosage: UNK
     Route: 048
  8. ANTICONVULSANT [Suspect]
     Dosage: UNK
     Route: 048
  9. PYRROLIDINONE DERIVITIVE [Suspect]
     Dosage: UNK
     Route: 048

REACTIONS (1)
  - COMPLETED SUICIDE [None]
